FAERS Safety Report 6166222-7 (Version None)
Quarter: 2009Q2

REPORT INFORMATION
  Report Type: 
  Country: None (occurrence: None)
  Receive Date: 20090422
  Receipt Date: 20090422
  Transmission Date: 20091009
  Serious: No
  Sender: FDA-Public Use
  Company Number: None

PATIENT
  Sex: Male
  Weight: 81.6475 kg

DRUGS (2)
  1. SERTRALINE [Suspect]
     Indication: CYCLOTHYMIC DISORDER
     Dosage: 100 MG 1 PER DAY ORAL TAB
     Route: 048
     Dates: start: 20090309
  2. SERTRALINE [Suspect]
     Indication: CYCLOTHYMIC DISORDER
     Dosage: 100 MG 1 PER DAY ORAL TAB
     Route: 048
     Dates: start: 20090101, end: 20090309

REACTIONS (6)
  - DRUG INEFFECTIVE [None]
  - GAIT DISTURBANCE [None]
  - HYPOAESTHESIA FACIAL [None]
  - MEMORY IMPAIRMENT [None]
  - PRODUCT SUBSTITUTION ISSUE [None]
  - SEDATION [None]
